FAERS Safety Report 8010478-2 (Version None)
Quarter: 2011Q4

REPORT INFORMATION
  Report Type: 
  Country: None (occurrence: None)
  Receive Date: 20111228
  Receipt Date: 20111223
  Transmission Date: 20120403
  Serious: Yes (Life-Threatening, Hospitalization, Other)
  Sender: FDA-Public Use
  Company Number: DE-SANOFI-AVENTIS-2011SA056592

PATIENT
  Age: 74 Year
  Sex: Male
  Weight: 79 kg

DRUGS (10)
  1. VITAMINE B12 [Concomitant]
     Indication: PROPHYLAXIS AGAINST ALCOHOLIC WITHDRAWAL SYNDROME
     Route: 065
     Dates: end: 20110101
  2. RAMIPRIL [Concomitant]
     Indication: HYPERTENSION
     Route: 048
     Dates: start: 20100101, end: 20110901
  3. TOLTERODINE TARTRATE [Concomitant]
     Route: 065
     Dates: end: 20110101
  4. JANUMET [Concomitant]
     Route: 048
     Dates: end: 20110901
  5. MULTAQ [Suspect]
     Indication: ATRIAL FIBRILLATION
     Route: 048
     Dates: start: 20110830, end: 20110901
  6. ST MARY'S THISTLE [Concomitant]
     Indication: PROPHYLAXIS AGAINST ALCOHOLIC WITHDRAWAL SYNDROME
     Route: 065
     Dates: end: 20110101
  7. BISOPROLOL [Concomitant]
     Indication: HYPERTENSION
     Route: 048
     Dates: start: 20100101, end: 20110901
  8. ALLOBETA [Concomitant]
     Route: 048
     Dates: end: 20110101
  9. PRAVASTATIN SODIUM [Concomitant]
     Route: 048
     Dates: end: 20110101
  10. VERAPAMIL [Concomitant]
     Route: 048
     Dates: end: 20110101

REACTIONS (17)
  - HYPERKALAEMIA [None]
  - DYSPNOEA AT REST [None]
  - ASPARTATE AMINOTRANSFERASE INCREASED [None]
  - BLOOD CREATININE INCREASED [None]
  - CARDIOVASCULAR DISORDER [None]
  - SINUS BRADYCARDIA [None]
  - DIZZINESS [None]
  - BLOOD CHOLINESTERASE DECREASED [None]
  - HYPERHIDROSIS [None]
  - BLOOD BILIRUBIN INCREASED [None]
  - ANXIETY [None]
  - GLOMERULAR FILTRATION RATE DECREASED [None]
  - MALAISE [None]
  - LIVER FUNCTION TEST ABNORMAL [None]
  - GAMMA-GLUTAMYLTRANSFERASE INCREASED [None]
  - ALANINE AMINOTRANSFERASE INCREASED [None]
  - RENAL FAILURE ACUTE [None]
